FAERS Safety Report 9270700 (Version 1)
Quarter: 2013Q2

REPORT INFORMATION
  Report Type: Report from Study
  Country: BR (occurrence: BR)
  Receive Date: 20130506
  Receipt Date: 20130506
  Transmission Date: 20140414
  Serious: Yes (Other)
  Sender: FDA-Public Use
  Company Number: BR-AMGEN-BRACT2011037421

PATIENT
  Age: 50 Year
  Sex: Female
  Weight: 54 kg

DRUGS (7)
  1. ETANERCEPT [Suspect]
     Indication: PSORIASIS
     Dosage: 50 MG, QWK
     Route: 058
     Dates: start: 201106, end: 201108
  2. ETANERCEPT [Suspect]
     Indication: PSORIATIC ARTHROPATHY
     Dosage: UNK
  3. ETANERCEPT [Suspect]
     Dosage: 50 MG, QWK
     Route: 058
     Dates: start: 201109, end: 201211
  4. OMEPRAZOLE [Concomitant]
     Dosage: 20 MG, 1X/DAY
     Dates: start: 200812
  5. PANTOPRAZOL                        /01263202/ [Concomitant]
     Indication: OESOPHAGITIS
     Dosage: 40 MG, 1X/DAY
     Dates: start: 20110620
  6. PANTOPRAZOL                        /01263202/ [Concomitant]
     Indication: GASTRITIS
     Dosage: UNK
  7. EUTHYROX [Concomitant]
     Indication: HYPOTHYROIDISM
     Dosage: 50 MG, 1X/DAY

REACTIONS (17)
  - Menstrual disorder [Not Recovered/Not Resolved]
  - Appendix disorder [Unknown]
  - Neoplasm [Unknown]
  - Influenza like illness [Recovered/Resolved]
  - Somnolence [Not Recovered/Not Resolved]
  - Head discomfort [Recovered/Resolved]
  - Fatigue [Recovered/Resolved]
  - Chills [Recovered/Resolved]
  - Depressed mood [Recovered/Resolved]
  - Feeling abnormal [Unknown]
  - Nausea [Unknown]
  - Pain [Not Recovered/Not Resolved]
  - Headache [Not Recovered/Not Resolved]
  - Dysmenorrhoea [Not Recovered/Not Resolved]
  - Back pain [Not Recovered/Not Resolved]
  - Injection site erythema [Unknown]
  - Injection site pain [Unknown]
